FAERS Safety Report 8900264 (Version 1)
Quarter: 2012Q4

REPORT INFORMATION
  Report Type: Report from Study
  Country: CA (occurrence: CA)
  Receive Date: 20121109
  Receipt Date: 20121109
  Transmission Date: 20130627
  Serious: Yes (Other)
  Sender: FDA-Public Use
  Company Number: CA-JNJFOC-20121100901

PATIENT
  Age: 41 Year
  Sex: Male
  Weight: 58.97 kg

DRUGS (15)
  1. REMICADE [Suspect]
     Indication: RHEUMATOID ARTHRITIS
     Dosage: once every 5 to 6 weeks
     Route: 042
     Dates: start: 20080730
  2. REMICADE [Suspect]
     Indication: RHEUMATOID ARTHRITIS
     Route: 042
     Dates: start: 20121031
  3. REMICADE [Suspect]
     Indication: COLITIS ULCERATIVE
     Dosage: once every 5 to 6 weeks
     Route: 042
     Dates: start: 20080730
  4. REMICADE [Suspect]
     Indication: COLITIS ULCERATIVE
     Route: 042
     Dates: start: 20121031
  5. REMICADE [Suspect]
     Indication: CROHN^S DISEASE
     Dosage: once every 5 to 6 weeks
     Route: 042
     Dates: start: 20080730
  6. REMICADE [Suspect]
     Indication: CROHN^S DISEASE
     Route: 042
     Dates: start: 20121031
  7. SOLU CORTEF [Concomitant]
     Indication: PREMEDICATION
     Route: 042
  8. BENADRYL [Concomitant]
     Indication: PREMEDICATION
     Route: 042
  9. TYLENOL [Concomitant]
     Indication: PREMEDICATION
     Route: 048
  10. SULFASALAZINE [Concomitant]
     Route: 065
  11. PURINETHOL [Concomitant]
     Route: 065
  12. CIPRALEX [Concomitant]
     Route: 065
  13. VALTREX [Concomitant]
     Route: 065
  14. NEXIUM [Concomitant]
     Route: 065
  15. CALCIUM WITH VITAMIN D [Concomitant]
     Route: 065

REACTIONS (5)
  - Dyspnoea [Unknown]
  - Chills [Unknown]
  - Back pain [Unknown]
  - Heart rate increased [Unknown]
  - Infusion related reaction [Unknown]
